FAERS Safety Report 5414625-8 (Version None)
Quarter: 2007Q3

REPORT INFORMATION
  Report Type: 
  Country: None (occurrence: None)
  Receive Date: 20070731
  Receipt Date: 20070621
  Transmission Date: 20080115
  Serious: No
  Sender: FDA-Public Use
  Company Number: 2006PV023504

PATIENT
  Age: 69 Year
  Sex: Female

DRUGS (8)
  1. EXENATIDE(EXENATIDE) PEN, DISPOSABLE [Suspect]
     Indication: TYPE 2 DIABETES MELLITUS
     Dosage: 5 UG, 2/D, SUBCUTANEOUS  10 UG, 2/D, SUBCUTANEOUS  5 UG, 2/D, SUBCUTANEOUS
     Route: 058
     Dates: start: 20060701, end: 20061016
  2. EXENATIDE(EXENATIDE) PEN, DISPOSABLE [Suspect]
     Indication: TYPE 2 DIABETES MELLITUS
     Dosage: 5 UG, 2/D, SUBCUTANEOUS  10 UG, 2/D, SUBCUTANEOUS  5 UG, 2/D, SUBCUTANEOUS
     Route: 058
     Dates: start: 20061017, end: 20070101
  3. EXENATIDE(EXENATIDE) PEN, DISPOSABLE [Suspect]
     Indication: TYPE 2 DIABETES MELLITUS
     Dosage: 5 UG, 2/D, SUBCUTANEOUS  10 UG, 2/D, SUBCUTANEOUS  5 UG, 2/D, SUBCUTANEOUS
     Route: 058
     Dates: start: 20070101
  4. LANTUS [Concomitant]
  5. AMARYL [Concomitant]
  6. PRANDIN [Concomitant]
  7. HUMALOG [Concomitant]
  8. APIDRA [Concomitant]

REACTIONS (7)
  - BLOOD GLUCOSE DECREASED [None]
  - BLOOD GLUCOSE INCREASED [None]
  - ERUCTATION [None]
  - HEADACHE [None]
  - NAUSEA [None]
  - VOMITING [None]
  - WEIGHT DECREASED [None]
